FAERS Safety Report 20484700 (Version 2)
Quarter: 2022Q2

REPORT INFORMATION
  Report Type: Report from Study
  Country: US (occurrence: None)
  Receive Date: 20220217
  Receipt Date: 20220412
  Transmission Date: 20220721
  Serious: Yes (Hospitalization)
  Sender: FDA-Public Use
  Company Number: US-ROCHE-2936012

PATIENT
  Age: 66 Year
  Sex: Male
  Weight: 92.9 kg

DRUGS (2)
  1. ATEZOLIZUMAB [Suspect]
     Active Substance: ATEZOLIZUMAB
     Indication: Chondrosarcoma
     Dosage: ON 26/MAY/2021, MOST RECENT DOSE OF ATEZOLIZUMAB 1200 MG.
     Route: 041
     Dates: start: 20210526, end: 20210526
  2. ATEZOLIZUMAB [Suspect]
     Active Substance: ATEZOLIZUMAB
     Indication: Clear cell sarcoma of soft tissue

REACTIONS (4)
  - Oedema peripheral [Not Recovered/Not Resolved]
  - Subcutaneous abscess [Recovered/Resolved]
  - Pelvic fluid collection [Recovered/Resolved]
  - Pelvic operation [Recovered/Resolved]

NARRATIVE: CASE EVENT DATE: 20210601
